FAERS Safety Report 17811260 (Version 1)
Quarter: 2020Q2

REPORT INFORMATION
  Report Type: Spontaneous
  Country: US (occurrence: US)
  Receive Date: 20200520
  Receipt Date: 20200520
  Transmission Date: 20200714
  Serious: Yes (Disabling)
  Sender: FDA-Public Use
  Company Number: None

PATIENT
  Sex: Female
  Weight: 87.75 kg

DRUGS (9)
  1. NORGESTREL-ETHINYL ESTRADIOL [Concomitant]
  2. FROVATRIPTAN. [Concomitant]
     Active Substance: FROVATRIPTAN
  3. HYDROXYZINE [Concomitant]
     Active Substance: HYDROXYZINE HYDROCHLORIDE
  4. SINGULAIR [Suspect]
     Active Substance: MONTELUKAST SODIUM
     Indication: ASTHMA
  5. AIMOVIG [Concomitant]
     Active Substance: ERENUMAB-AOOE
  6. MONTELUKAST SODIUM. [Suspect]
     Active Substance: MONTELUKAST SODIUM
  7. TOPIMAX [Concomitant]
  8. CLONAZEPAM. [Concomitant]
     Active Substance: CLONAZEPAM
  9. DULOXETINE. [Concomitant]
     Active Substance: DULOXETINE

REACTIONS (11)
  - Migraine [None]
  - Muscle twitching [None]
  - Anxiety [None]
  - Fatigue [None]
  - Suicidal ideation [None]
  - Panic attack [None]
  - Disturbance in attention [None]
  - Obsessive-compulsive symptom [None]
  - Insomnia [None]
  - Irritability [None]
  - Depression [None]
